FAERS Safety Report 7936829-2 (Version None)
Quarter: 2011Q4

REPORT INFORMATION
  Report Type: 
  Country: None (occurrence: None)
  Receive Date: 20111123
  Receipt Date: 20111121
  Transmission Date: 20120403
  Serious: Yes (Other)
  Sender: FDA-Public Use
  Company Number: US-PFIZER INC-2011285355

PATIENT
  Sex: Female

DRUGS (5)
  1. ZOLOFT [Suspect]
     Indication: SOCIAL AVOIDANT BEHAVIOUR
  2. LEXAPRO [Suspect]
     Dosage: UNK
  3. ZOLOFT [Suspect]
     Indication: EMOTIONAL DISORDER
  4. CYMBALTA [Suspect]
     Dosage: UNK
  5. ZOLOFT [Suspect]
     Indication: DEPRESSION
     Dosage: UNK
     Dates: start: 20111101

REACTIONS (4)
  - SOCIAL AVOIDANT BEHAVIOUR [None]
  - DEPRESSION [None]
  - EMOTIONAL DISORDER [None]
  - DRUG INEFFECTIVE [None]
